FAERS Safety Report 15071354 (Version 1)
Quarter: 2018Q2

REPORT INFORMATION
  Report Type: Report from Study
  Country: US (occurrence: US)
  Receive Date: 20180626
  Receipt Date: 20180626
  Transmission Date: 20180711
  Serious: No
  Sender: FDA-Public Use
  Company Number: US-AMGEN-USASL2015096330

PATIENT
  Age: 71 Year
  Sex: Female

DRUGS (1)
  1. PROLIA [Suspect]
     Active Substance: DENOSUMAB
     Indication: PRODUCT USED FOR UNKNOWN INDICATION
     Dosage: UNK
     Route: 065

REACTIONS (8)
  - Groin pain [Not Recovered/Not Resolved]
  - Joint noise [Unknown]
  - Anxiety [Unknown]
  - Herpes zoster [Unknown]
  - Arthralgia [Unknown]
  - Mobility decreased [Unknown]
  - Arthropathy [Unknown]
  - Bone density abnormal [Unknown]
